FAERS Safety Report 5567636-6 (Version None)
Quarter: 2007Q4

REPORT INFORMATION
  Report Type: 
  Country: None (occurrence: None)
  Receive Date: 20071214
  Receipt Date: 20071206
  Transmission Date: 20080405
  Serious: Yes (Hospitalization)
  Sender: FDA-Public Use
  Company Number: TPA2007A02461

PATIENT
  Age: 76 Year
  Sex: Male
  Weight: 69.4003 kg

DRUGS (4)
  1. ACTOPLUS MET [Suspect]
     Indication: TYPE 2 DIABETES MELLITUS
     Dosage: 15/500 MG, 2 IN 1 D, PER ORAL
     Route: 048
     Dates: start: 20060206
  2. HYDROCHLOROTHIAZIDE [Concomitant]
  3. PRAVASTATIN [Concomitant]
  4. AVANDAMET [Concomitant]

REACTIONS (3)
  - SCIATICA [None]
  - TOOTH DISCOLOURATION [None]
  - WEIGHT INCREASED [None]
